FAERS Safety Report 12912725 (Version 1)
Quarter: 2016Q4

REPORT INFORMATION
  Report Type: Spontaneous
  Country: FR (occurrence: FR)
  Receive Date: 20161104
  Receipt Date: 20161104
  Transmission Date: 20170207
  Serious: Yes (Hospitalization)
  Sender: FDA-Public Use
  Company Number: FR-SA-2016SA198261

PATIENT
  Age: 93 Year
  Sex: Female

DRUGS (11)
  1. KARDEGIC [Concomitant]
     Active Substance: ASPIRIN LYSINE
     Dosage: STRENGTH: 160 MG
  2. PARACETAMOL [Concomitant]
     Active Substance: ACETAMINOPHEN
     Dosage: STRENGTH: 500 MG
  3. LASILIX FABILE [Concomitant]
     Active Substance: FUROSEMIDE
     Dosage: STRENGTH: 20 MG
  4. INEXIUM [Concomitant]
     Active Substance: ESOMEPRAZOLE
     Dosage: STRENGTH: 20 MG
  5. NEO MERCAZOLE [Concomitant]
     Active Substance: CARBIMAZOLE
     Dosage: STRENGTH: 5 MG
  6. MIRTAZAPINE. [Concomitant]
     Active Substance: MIRTAZAPINE
     Dosage: STRENGTH: 15 MG
  7. IMOVANE [Concomitant]
     Active Substance: ZOPICLONE
     Dosage: STRENGTH: 3.75 MG
  8. LANTUS [Suspect]
     Active Substance: INSULIN GLARGINE
     Indication: MEDICATION ERROR
     Route: 058
     Dates: start: 20160504, end: 20160504
  9. AMLODIPINE [Concomitant]
     Active Substance: AMLODIPINE BESYLATE
  10. FORLAX [Concomitant]
     Active Substance: POLYETHYLENE GLYCOL 4000
  11. RISPERDAL [Concomitant]
     Active Substance: RISPERIDONE
     Dosage: STRENGTH: 1 MG, FILM COATED DIVISIBLE TABLET

REACTIONS (2)
  - Hypoglycaemia [Recovered/Resolved]
  - Medication error [Unknown]

NARRATIVE: CASE EVENT DATE: 20160504
